FAERS Safety Report 8364856-2 (Version None)
Quarter: 2012Q2

REPORT INFORMATION
  Report Type: 
  Country: None (occurrence: None)
  Receive Date: 20120516
  Receipt Date: 20120511
  Transmission Date: 20120825
  Serious: Yes (Other)
  Sender: FDA-Public Use
  Company Number: US-ROCHE-1068326

PATIENT
  Sex: Male
  Weight: 78.542 kg

DRUGS (1)
  1. XOLAIR [Suspect]
     Indication: HYPERSENSITIVITY
     Dosage: 300
     Route: 058
     Dates: start: 20110405, end: 20111220

REACTIONS (1)
  - RHEUMATOID ARTHRITIS [None]
